FAERS Safety Report 15748933 (Version 1)
Quarter: 2018Q4

REPORT INFORMATION
  Report Type: Spontaneous
  Country: US (occurrence: US)
  Receive Date: 20181221
  Receipt Date: 20181221
  Transmission Date: 20190205
  Serious: No
  Sender: FDA-Public Use
  Company Number: US-RECKITT BENCKISER HEALTHCARE INT LIMITED-RB-98571-2017

PATIENT
  Age: 69 Year
  Sex: Female

DRUGS (1)
  1. DELSYM [Suspect]
     Active Substance: DEXTROMETHORPHAN
     Indication: COUGH
     Dosage: 20 ML, BID, ( TWICE A DAY FOR ABOUT A WEEK)
     Route: 065
     Dates: start: 20171108, end: 20171116

REACTIONS (1)
  - Drug ineffective [Not Recovered/Not Resolved]
